FAERS Safety Report 8954421 (Version 1)
Quarter: 2012Q4

REPORT INFORMATION
  Report Type: Report from Study
  Country: JP (occurrence: JP)
  Receive Date: 20121207
  Receipt Date: 20121207
  Transmission Date: 20130627
  Serious: Yes (Hospitalization)
  Sender: FDA-Public Use
  Company Number: JP-ABBOTT-12P-087-1016599-00

PATIENT
  Age: 53 Year
  Sex: Male

DRUGS (2)
  1. LEUPROLIDE ACETATE DEPOT [Suspect]
     Indication: SPINAL MUSCULAR ATROPHY
     Route: 058
     Dates: start: 20120824
  2. DUOTRAV [Concomitant]
     Indication: GLAUCOMA
     Dosage: optimal dose
     Route: 047
     Dates: start: 20120106

REACTIONS (1)
  - Prinzmetal angina [Recovering/Resolving]
